FAERS Safety Report 25688266 (Version 1)
Quarter: 2025Q3

REPORT INFORMATION
  Report Type: Spontaneous
  Country: US (occurrence: US)
  Receive Date: 20250818
  Receipt Date: 20250818
  Transmission Date: 20251021
  Serious: Yes (Other)
  Sender: Haleon PLC
  Company Number: US-HALEON-2257827

PATIENT
  Age: 71 Year
  Sex: Male

DRUGS (1)
  1. PREPARATION H HYDROCORTISONE [Suspect]
     Active Substance: HYDROCORTISONE
     Indication: Haemorrhoids

REACTIONS (1)
  - Haemorrhage [Recovered/Resolved]
